FAERS Safety Report 19471971 (Version 1)
Quarter: 2021Q2

REPORT INFORMATION
  Report Type: Spontaneous
  Country: US (occurrence: US)
  Receive Date: 20210629
  Receipt Date: 20210629
  Transmission Date: 20210717
  Serious: Yes (Other)
  Sender: FDA-Public Use
  Company Number: US-AUROBINDO-AUR-APL-2011-05011

PATIENT
  Age: 45 Year
  Sex: Male

DRUGS (2)
  1. STAVUDINE. [Suspect]
     Active Substance: STAVUDINE
     Indication: HIV INFECTION
     Dosage: UNK UNK,UNK,
     Route: 065
     Dates: start: 1996, end: 2009
  2. ZIDOVUDINE. [Suspect]
     Active Substance: ZIDOVUDINE
     Indication: HIV INFECTION
     Dosage: UNK
     Route: 065
     Dates: start: 1987, end: 1995

REACTIONS (3)
  - Lagophthalmos [Recovering/Resolving]
  - Lipoatrophy [Recovering/Resolving]
  - Enophthalmos [Recovering/Resolving]
